FAERS Safety Report 16701909 (Version 2)
Quarter: 2019Q3

REPORT INFORMATION
  Report Type: Report from Study
  Country: DE (occurrence: DE)
  Receive Date: 20190814
  Receipt Date: 20190823
  Transmission Date: 20191004
  Serious: Yes (Other)
  Sender: FDA-Public Use
  Company Number: DE-AUROBINDO-AUR-APL-2019-054373

PATIENT

DRUGS (2)
  1. IBUPROFEN. [Suspect]
     Active Substance: IBUPROFEN
     Indication: MIGRAINE
     Dosage: UNK
     Route: 065
  2. PETADOLEX [Suspect]
     Active Substance: HERBALS
     Indication: MIGRAINE
     Dosage: 150 MILLIGRAM, DAILY
     Route: 065

REACTIONS (10)
  - Aspartate aminotransferase increased [Unknown]
  - Hepatitis acute [Unknown]
  - Abdominal discomfort [Unknown]
  - Decreased appetite [Unknown]
  - Inflammation [Unknown]
  - Jaundice [Unknown]
  - Chromaturia [Unknown]
  - Liver injury [Unknown]
  - Alanine aminotransferase increased [Unknown]
  - Ocular icterus [Unknown]
